FAERS Safety Report 20891842 (Version 1)
Quarter: 2022Q2

REPORT INFORMATION
  Report Type: Spontaneous
  Country: US (occurrence: US)
  Receive Date: 20220530
  Receipt Date: 20220530
  Transmission Date: 20220721
  Serious: Yes (Other)
  Sender: FDA-Public Use
  Company Number: US-PFIZER INC-202200755436

PATIENT
  Age: 61 Year

DRUGS (2)
  1. IBRANCE [Suspect]
     Active Substance: PALBOCICLIB
     Dosage: UNK
  2. VERZENIO [Suspect]
     Active Substance: ABEMACICLIB
     Dosage: UNK

REACTIONS (1)
  - Mental impairment [Unknown]
